FAERS Safety Report 8814381 (Version 1)
Quarter: 2012Q4

REPORT INFORMATION
  Report Type: Spontaneous
  Country: US (occurrence: None)
  Receive Date: 20120926
  Receipt Date: 20120926
  Transmission Date: 20130627
  Serious: Yes (Hospitalization, Other)
  Sender: FDA-Public Use
  Company Number: DSU-2012-07488

PATIENT
  Age: 64 Year
  Sex: Female
  Weight: 107.5 kg

DRUGS (1)
  1. BENICAR HCT [Suspect]
     Indication: HYPERTENSION
     Route: 048
     Dates: end: 20120827

REACTIONS (2)
  - Convulsion [None]
  - Blood sodium decreased [None]
